FAERS Safety Report 10239309 (Version 4)
Quarter: 2014Q3

REPORT INFORMATION
  Report Type: Spontaneous
  Country: JP (occurrence: JP)
  Receive Date: 20140616
  Receipt Date: 20140725
  Transmission Date: 20150326
  Serious: Yes (Hospitalization)
  Sender: FDA-Public Use
  Company Number: JP-BRISTOL-MYERS SQUIBB COMPANY-20986519

PATIENT
  Age: 86 Year
  Sex: Female
  Weight: 47 kg

DRUGS (7)
  1. PRONON [Concomitant]
     Active Substance: PROPAFENONE
     Dosage: TABLET
     Route: 048
  2. NEXIUM [Concomitant]
     Active Substance: ESOMEPRAZOLE MAGNESIUM
     Indication: PROPHYLAXIS
     Dosage: CAPS
     Route: 048
  3. MEVALOTIN [Concomitant]
     Active Substance: PRAVASTATIN SODIUM
     Dosage: TABLET
     Route: 048
  4. BEPRICOR [Concomitant]
     Active Substance: BEPRIDIL
  5. ATELEC [Concomitant]
     Active Substance: CILNIDIPINE
     Indication: HYPERTENSION
     Route: 048
  6. ELIQUIS [Suspect]
     Active Substance: APIXABAN
     Dosage: TABLET
     Route: 048
     Dates: start: 20140531
  7. ONEALFA [Concomitant]
     Active Substance: ALFACALCIDOL
     Indication: OSTEOPOROSIS
     Route: 048

REACTIONS (1)
  - Haematoma [Unknown]

NARRATIVE: CASE EVENT DATE: 20140603
